FAERS Safety Report 4606832-9 (Version None)
Quarter: 2005Q1

REPORT INFORMATION
  Report Type: 
  Country: None (occurrence: None)
  Receive Date: 20050310
  Receipt Date: 20050224
  Transmission Date: 20050727
  Serious: Yes (Hospitalization)
  Sender: FDA-Public Use
  Company Number: 200502IM000041

PATIENT

DRUGS (1)
  1. INFERGEN (INTERFERON ALFACON-1) [Suspect]
     Indication: HEPATITIS C

REACTIONS (1)
  - CEREBROVASCULAR ACCIDENT [None]
